FAERS Safety Report 17732756 (Version 5)
Quarter: 2021Q1

REPORT INFORMATION
  Report Type: Report from Study
  Country: AT (occurrence: AT)
  Receive Date: 20200501
  Receipt Date: 20210202
  Transmission Date: 20210419
  Serious: Yes (Hospitalization, Other)
  Sender: FDA-Public Use
  Company Number: NVSC2020AT063275

PATIENT
  Age: 85 Year
  Sex: Female
  Weight: 68 kg

DRUGS (6)
  1. RIBOCICLIB. [Suspect]
     Active Substance: RIBOCICLIB
     Indication: BREAST CANCER METASTATIC
     Dosage: 600 MG, QD
     Route: 065
     Dates: start: 20200213, end: 20200312
  2. ENTEROBENE [Concomitant]
     Indication: PRODUCT USED FOR UNKNOWN INDICATION
     Dosage: UNK
     Route: 065
  3. LETROZOL [Suspect]
     Active Substance: LETROZOLE
     Indication: HORMONE THERAPY
     Dosage: 2.5 MG, QD
     Route: 065
     Dates: start: 20200210, end: 20200620
  4. CIPRALEX [Concomitant]
     Active Substance: ESCITALOPRAM OXALATE
     Indication: ANTIDEPRESSANT THERAPY
     Dosage: 10 NG
     Route: 065
  5. RIBOCICLIB. [Suspect]
     Active Substance: RIBOCICLIB
     Dosage: 600 MG, QD
     Route: 065
     Dates: start: 20200317, end: 20200421
  6. RIBOCICLIB. [Suspect]
     Active Substance: RIBOCICLIB
     Dosage: UNK
     Route: 065
     Dates: start: 20200609

REACTIONS (8)
  - Transaminases increased [Recovering/Resolving]
  - Electrocardiogram QT prolonged [Recovered/Resolved]
  - Mucosal infection [Recovered/Resolved]
  - Erythema multiforme [Not Recovered/Not Resolved]
  - Mucosal inflammation [Recovered/Resolved]
  - Diarrhoea [Unknown]
  - Oedema peripheral [Unknown]
  - Oedema peripheral [Recovered/Resolved]

NARRATIVE: CASE EVENT DATE: 20200309
